FAERS Safety Report 18392344 (Version 1)
Quarter: 2020Q4

REPORT INFORMATION
  Report Type: Spontaneous
  Country: US (occurrence: US)
  Receive Date: 20201016
  Receipt Date: 20201016
  Transmission Date: 20210114
  Serious: Yes (Death)
  Sender: FDA-Public Use
  Company Number: None

PATIENT
  Age: 80 Year
  Sex: Male

DRUGS (13)
  1. DOXYCYC MONO, [Concomitant]
  2. SILDENAFIL, [Concomitant]
  3. PREDNISONE, [Concomitant]
  4. HYDROCHLOROT [Concomitant]
     Active Substance: HYDROCHLOROTHIAZIDE
  5. ESBRIET [Suspect]
     Active Substance: PIRFENIDONE
     Indication: IDIOPATHIC PULMONARY FIBROSIS
     Dosage: ?          OTHER DOSE:3 CAPS;?
     Route: 048
     Dates: start: 20200904, end: 20201013
  6. AZITHROMYCIN, [Concomitant]
  7. TRELEGY ELLIPT, [Concomitant]
  8. DILT-XR, [Concomitant]
  9. OMEPRAZOLE, [Concomitant]
  10. VALSART/HCTZ [Concomitant]
  11. XARELTO [Concomitant]
     Active Substance: RIVAROXABAN
  12. DILTIAZEM ER, [Concomitant]
  13. GABAPENTIN. [Concomitant]
     Active Substance: GABAPENTIN

REACTIONS (1)
  - Drug hypersensitivity [None]

NARRATIVE: CASE EVENT DATE: 20201013
